FAERS Safety Report 11360235 (Version 3)
Quarter: 2018Q2

REPORT INFORMATION
  Report Type: Spontaneous
  Country: JP (occurrence: JP)
  Receive Date: 20150810
  Receipt Date: 20180420
  Transmission Date: 20180711
  Serious: Yes (Other)
  Sender: FDA-Public Use
  Company Number: JP-ROCHE-1619592

PATIENT
  Age: 51 Year
  Sex: Male

DRUGS (1)
  1. RANIBIZUMAB. [Suspect]
     Active Substance: RANIBIZUMAB
     Indication: RETINAL VEIN OCCLUSION
     Route: 031
     Dates: start: 20140217

REACTIONS (5)
  - Retinal ischaemia [Unknown]
  - Vitreous haemorrhage [Not Recovered/Not Resolved]
  - Cataract [Unknown]
  - Retinal vascular occlusion [Recovered/Resolved]
  - Cystoid macular oedema [Recovered/Resolved]
